FAERS Safety Report 5679612-3 (Version None)
Quarter: 2008Q1

REPORT INFORMATION
  Report Type: 
  Country: None (occurrence: None)
  Receive Date: 20080325
  Receipt Date: 20080313
  Transmission Date: 20080703
  Serious: Yes (Hospitalization, Other)
  Sender: FDA-Public Use
  Company Number: US-PFIZER INC-2008026089

PATIENT
  Sex: Male
  Weight: 86.2 kg

DRUGS (3)
  1. VIAGRA [Suspect]
     Indication: ERECTILE DYSFUNCTION
  2. NORVASC [Suspect]
     Indication: HYPERTENSION
  3. NORVASC [Suspect]
     Indication: PAIN

REACTIONS (5)
  - CORONARY ARTERY DISEASE [None]
  - FEELING COLD [None]
  - HYPOAESTHESIA [None]
  - THROMBOSIS [None]
  - VASCULAR GRAFT [None]
